FAERS Safety Report 6877606-3 (Version None)
Quarter: 2010Q3

REPORT INFORMATION
  Report Type: 
  Country: None (occurrence: None)
  Receive Date: 20100727
  Receipt Date: 20100402
  Transmission Date: 20110219
  Serious: No
  Sender: FDA-Public Use
  Company Number: US-ABBOTT-10P-163-0637114-00

PATIENT
  Sex: Female
  Weight: 68.1 kg

DRUGS (4)
  1. SYNTHROID [Suspect]
     Indication: HYPOTHYROIDISM
     Route: 048
     Dates: start: 20070101
  2. PAROXETINE HCL [Concomitant]
     Indication: ANXIETY
     Route: 048
  3. VITAMIN D [Concomitant]
     Indication: VITAMIN SUPPLEMENTATION
  4. UNKNOWN MEDICATION [Concomitant]
     Indication: MUSCLE SPASMS
     Dosage: ^NUVETONE^
     Dates: start: 20050101

REACTIONS (3)
  - ANXIETY [None]
  - PRURITUS [None]
  - URTICARIA [None]
